FAERS Safety Report 4552115-5 (Version None)
Quarter: 2004Q4

REPORT INFORMATION
  Report Type: 
  Country: None (occurrence: None)
  Receive Date: 20041217
  Receipt Date: 20041018
  Transmission Date: 20050328
  Serious: No
  Sender: FDA-Public Use
  Company Number: 2004-BP-10098BP

PATIENT
  Age: 69 Year
  Sex: Male

DRUGS (11)
  1. SPIRIVA [Suspect]
     Indication: CHRONIC OBSTRUCTIVE AIRWAYS DISEASE
     Dosage: 18 MCG (18 MCG), IH
     Route: 055
     Dates: start: 20041001
  2. SPIRIVA [Suspect]
     Indication: EMPHYSEMA
  3. INSULIN [Concomitant]
  4. PROSCAR [Concomitant]
  5. PRILOSEC [Concomitant]
  6. CALCIUM CARBONATE [Concomitant]
  7. METROPROLOL [Concomitant]
  8. ADVAIR (SERETIDE MITE) [Concomitant]
  9. COUMADIN [Concomitant]
  10. COLACE (DOCUSATE SODIUM) [Concomitant]
  11. EPIOGEN [Concomitant]

REACTIONS (4)
  - BLOOD GLUCOSE INCREASED [None]
  - BLOOD PRESSURE INCREASED [None]
  - DRY MOUTH [None]
  - HOARSENESS [None]
